FAERS Safety Report 9973084 (Version 5)
Quarter: 2014Q3

REPORT INFORMATION
  Report Type: Spontaneous
  Country: US (occurrence: US)
  Receive Date: 20140306
  Receipt Date: 20140908
  Transmission Date: 20150326
  Serious: Yes (Other)
  Sender: FDA-Public Use
  Company Number: US-PFIZER INC-2014061835

PATIENT
  Age: 73 Year
  Sex: Female
  Weight: 70 kg

DRUGS (5)
  1. ATORVASTATIN CALCIUM. [Suspect]
     Active Substance: ATORVASTATIN CALCIUM
     Indication: LIPIDS INCREASED
     Dosage: 10 MG, DAILY
     Dates: start: 200704
  2. LIPITOR [Suspect]
     Active Substance: ATORVASTATIN CALCIUM
     Indication: CARDIOVASCULAR EVENT PROPHYLAXIS
     Dosage: 10 MG, DAILY
     Route: 048
     Dates: start: 20070406
  3. ATORVASTATIN CALCIUM. [Suspect]
     Active Substance: ATORVASTATIN CALCIUM
     Indication: CARDIOVASCULAR EVENT PROPHYLAXIS
     Dosage: 20 MG, DAILY
     Dates: start: 200812, end: 201401
  4. LIPITOR [Suspect]
     Active Substance: ATORVASTATIN CALCIUM
     Dosage: 20 MG, DAILY
     Route: 048
     Dates: start: 200812, end: 201401
  5. LIPITOR [Suspect]
     Active Substance: ATORVASTATIN CALCIUM
     Indication: LOW DENSITY LIPOPROTEIN INCREASED
     Dosage: UNK, AS DIRECTED
     Route: 048
     Dates: start: 2005

REACTIONS (8)
  - Type 2 diabetes mellitus [Not Recovered/Not Resolved]
  - Peripheral sensorimotor neuropathy [Not Recovered/Not Resolved]
  - Cardiac disorder [Unknown]
  - Nephropathy [Unknown]
  - Cerebrovascular accident [Unknown]
  - Visual impairment [Unknown]
  - Peripheral vascular disorder [Unknown]
  - Dehydration [Unknown]

NARRATIVE: CASE EVENT DATE: 20080822
